FAERS Safety Report 5115249-2 (Version None)
Quarter: 2006Q3

REPORT INFORMATION
  Report Type: 
  Country: None (occurrence: None)
  Receive Date: 20060926
  Receipt Date: 20060917
  Transmission Date: 20061208
  Serious: Yes (Other)
  Sender: FDA-Public Use
  Company Number: FR-AVENTIS-200613217FR

PATIENT
  Sex: Male

DRUGS (1)
  1. NASACORT [Suspect]
     Route: 045

REACTIONS (2)
  - GRAFT COMPLICATION [None]
  - NASAL NECROSIS [None]
